FAERS Safety Report 8171786-8 (Version None)
Quarter: 2012Q1

REPORT INFORMATION
  Report Type: 
  Country: None (occurrence: None)
  Receive Date: 20120228
  Receipt Date: 20120222
  Transmission Date: 20120608
  Serious: Yes (Hospitalization)
  Sender: FDA-Public Use
  Company Number: US-GLAXOSMITHKLINE-A0967685A

PATIENT
  Age: 55 Year
  Sex: Female

DRUGS (4)
  1. TOPAMAX [Suspect]
     Indication: CONVULSION
     Route: 065
  2. LAMICTAL [Suspect]
     Indication: CONVULSION
     Route: 048
  3. EFFEXOR XR [Suspect]
     Indication: ANXIETY
     Dosage: 150MG TWICE PER DAY
     Route: 048
  4. FOLIC ACID [Concomitant]
     Indication: THALASSAEMIA BETA

REACTIONS (6)
  - MUSCLE SPASMS [None]
  - PAIN [None]
  - GRAND MAL CONVULSION [None]
  - INCORRECT DOSE ADMINISTERED [None]
  - DIVERTICULITIS [None]
  - INSOMNIA [None]
